FAERS Safety Report 16129969 (Version 2)
Quarter: 2019Q2

REPORT INFORMATION
  Report Type: Spontaneous
  Country: US (occurrence: US)
  Receive Date: 20190328
  Receipt Date: 20190430
  Transmission Date: 20190711
  Serious: No
  Sender: FDA-Public Use
  Company Number: US-LEXICON PHARMACEUTICALS, INC-19-1606-00297

PATIENT
  Age: 72 Year
  Sex: Female

DRUGS (14)
  1. AFINITOR [Concomitant]
     Active Substance: EVEROLIMUS
  2. HYDROCODON-APAP [Concomitant]
  3. MULTIVITAMIN [Concomitant]
     Active Substance: VITAMINS
  4. VASERETIC [Concomitant]
     Active Substance: ENALAPRIL MALEATE\HYDROCHLOROTHIAZIDE
  5. LANREOTIDE [Concomitant]
     Active Substance: LANREOTIDE
  6. CALCIUM [Concomitant]
     Active Substance: CALCIUM
  7. POTASSIUM [Concomitant]
     Active Substance: POTASSIUM
  8. PRAVASTATIN. [Concomitant]
     Active Substance: PRAVASTATIN
  9. LEVOTHYROXIN [Concomitant]
     Active Substance: LEVOTHYROXINE
  10. OCTREOTIDE. [Concomitant]
     Active Substance: OCTREOTIDE
  11. DEXAMETHASON [Concomitant]
     Active Substance: DEXAMETHASONE
  12. GABAPENTIN. [Concomitant]
     Active Substance: GABAPENTIN
  13. TELOTRISTAT ETHYL [Suspect]
     Active Substance: TELOTRISTAT ETHYL
     Indication: CARCINOID SYNDROME
     Route: 048
     Dates: start: 20180406
  14. TOPAMAX [Concomitant]
     Active Substance: TOPIRAMATE

REACTIONS (2)
  - Off label use [Unknown]
  - Urinary tract infection [Recovered/Resolved]

NARRATIVE: CASE EVENT DATE: 20190311
